FAERS Safety Report 6908632-3 (Version None)
Quarter: 2010Q3

REPORT INFORMATION
  Report Type: 
  Country: None (occurrence: None)
  Receive Date: 20100719
  Receipt Date: 20091207
  Transmission Date: 20110219
  Serious: Yes (Other)
  Sender: FDA-Public Use
  Company Number: US-WYE-H12554409

PATIENT
  Age: 82 Year
  Sex: Male
  Weight: 99.88 kg

DRUGS (1)
  1. ADVIL LIQUI-GELS [Suspect]
     Indication: ANALGESIC THERAPY
     Dosage: 1 TABLET AS NEEDED, ORAL
     Route: 048
     Dates: start: 20090601, end: 20091207

REACTIONS (2)
  - DYSPNOEA [None]
  - HYPERVENTILATION [None]
